FAERS Safety Report 19097145 (Version 1)
Quarter: 2021Q2

REPORT INFORMATION
  Report Type: Spontaneous
  Country: US (occurrence: US)
  Receive Date: 20210406
  Receipt Date: 20210406
  Transmission Date: 20210717
  Serious: Yes (Life-Threatening, Hospitalization)
  Sender: FDA-Public Use
  Company Number: None

PATIENT
  Age: 65 Year
  Sex: Male

DRUGS (1)
  1. RIVAROXABAN (RIVAROXABAN 20MG TAB) [Suspect]
     Active Substance: RIVAROXABAN
     Indication: PULMONARY EMBOLISM
     Route: 048
     Dates: start: 20200723, end: 20210226

REACTIONS (5)
  - Haemorrhage [None]
  - Pulmonary mass [None]
  - Pleural effusion [None]
  - Condition aggravated [None]
  - Haemoptysis [None]

NARRATIVE: CASE EVENT DATE: 20210226
